FAERS Safety Report 9269517 (Version 1)
Quarter: 2013Q2

REPORT INFORMATION
  Report Type: Spontaneous
  Country: US (occurrence: US)
  Receive Date: 20130503
  Receipt Date: 20130503
  Transmission Date: 20140414
  Serious: Yes (Life-Threatening)
  Sender: FDA-Public Use
  Company Number: US-ROXANE LABORATORIES, INC.-2013-RO-00656RO

PATIENT
  Age: 13 Year
  Sex: Female
  Weight: 61 kg

DRUGS (3)
  1. AMLODIPINE [Suspect]
     Dosage: 300 MG
     Route: 048
  2. BUTALBITAL [Suspect]
  3. ALCOHOL [Suspect]

REACTIONS (4)
  - Toxicity to various agents [Recovered/Resolved]
  - Multi-organ disorder [Recovered/Resolved]
  - Intentional overdose [Recovered/Resolved]
  - Hypotension [Recovered/Resolved]
